FAERS Safety Report 10785796 (Version 1)
Quarter: 2015Q1

REPORT INFORMATION
  Report Type: Spontaneous
  Country: US (occurrence: None)
  Receive Date: 20150210
  Receipt Date: 20150210
  Transmission Date: 20150721
  Serious: Yes (Hospitalization)
  Sender: FDA-Public Use
  Company Number: None

PATIENT
  Age: 14 Year
  Sex: Male
  Weight: 89.9 kg

DRUGS (5)
  1. ONCASPAR [Suspect]
     Active Substance: PEGASPARGASE
     Indication: CHEMOTHERAPY
     Dosage: 5,050 UNITS ONE TIME INTRAVENOUS
     Route: 042
     Dates: start: 20150123, end: 20150123
  2. ONDANSETRON [Concomitant]
     Active Substance: ONDANSETRON
  3. PREDNISONE. [Concomitant]
     Active Substance: PREDNISONE
  4. AMLODIPINE [Concomitant]
     Active Substance: AMLODIPINE BESYLATE
  5. FLUCONAZOLE. [Concomitant]
     Active Substance: FLUCONAZOLE

REACTIONS (1)
  - Pancreatitis [None]

NARRATIVE: CASE EVENT DATE: 20150123
